FAERS Safety Report 5391616-7 (Version None)
Quarter: 2007Q3

REPORT INFORMATION
  Report Type: 
  Country: None (occurrence: None)
  Receive Date: 20070719
  Receipt Date: 20070706
  Transmission Date: 20080115
  Serious: Yes (Hospitalization)
  Sender: FDA-Public Use
  Company Number: US-GENENTECH-244143

PATIENT
  Sex: Male
  Weight: 89 kg

DRUGS (2)
  1. AVASTIN [Suspect]
     Indication: PANCREATIC CARCINOMA
     Dosage: 855 MG, UNK
     Route: 042
     Dates: start: 20070629
  2. GEMZAR [Suspect]
     Indication: PANCREATIC CARCINOMA
     Dosage: 3000 MG, UNK
     Route: 042
     Dates: start: 20070629

REACTIONS (1)
  - PYREXIA [None]
